FAERS Safety Report 17926690 (Version 1)
Quarter: 2020Q2

REPORT INFORMATION
  Report Type: Spontaneous
  Country: CA (occurrence: CA)
  Receive Date: 20200623
  Receipt Date: 20200623
  Transmission Date: 20200714
  Serious: Yes (Life-Threatening, Hospitalization, Other)
  Sender: FDA-Public Use
  Company Number: CA-AUROBINDO-AUR-APL-2020-030114

PATIENT
  Age: 16 Year
  Sex: Male

DRUGS (3)
  1. TOBRADEX [Concomitant]
     Active Substance: DEXAMETHASONE\TOBRAMYCIN
     Indication: PRODUCT USED FOR UNKNOWN INDICATION
     Dosage: UNK
     Route: 065
  2. AZITHROMYCIN ANHYDROUS. [Suspect]
     Active Substance: AZITHROMYCIN ANHYDROUS
     Indication: BRONCHITIS
     Dosage: UNK
     Route: 065
  3. TYLENOL COLD + FLU [Concomitant]
     Active Substance: ACETAMINOPHEN\DEXTROMETHORPHAN\PSEUDOEPHEDRINE
     Indication: PRODUCT USED FOR UNKNOWN INDICATION
     Dosage: UNK
     Route: 065

REACTIONS (6)
  - Mycoplasma test positive [Recovered/Resolved]
  - Erythema [Recovered/Resolved]
  - Stevens-Johnson syndrome [Recovered/Resolved]
  - Chapped lips [Recovered/Resolved]
  - Oropharyngeal pain [Recovered/Resolved]
  - Rash maculo-papular [Recovered/Resolved]
